FAERS Safety Report 12624804 (Version 1)
Quarter: 2016Q3

REPORT INFORMATION
  Report Type: Spontaneous
  Country: US (occurrence: None)
  Receive Date: 20160804
  Receipt Date: 20160804
  Transmission Date: 20161109
  Serious: Yes (Other)
  Sender: FDA-Public Use
  Company Number: None

PATIENT
  Age: 56 Year
  Sex: Female
  Weight: 63.5 kg

DRUGS (6)
  1. ZOLPIDEM [Suspect]
     Active Substance: ZOLPIDEM\ZOLPIDEM TARTRATE
     Indication: SLEEP DISORDER
     Route: 048
     Dates: start: 20160727, end: 20160730
  2. CURCUMIN [Concomitant]
     Active Substance: CURCUMIN
  3. PRILOSEC [Concomitant]
     Active Substance: OMEPRAZOLE MAGNESIUM
  4. MULTI VITAMIN [Concomitant]
     Active Substance: VITAMINS
  5. B12 GUMMIES [Concomitant]
  6. TRIAMTERENE. [Concomitant]
     Active Substance: TRIAMTERENE

REACTIONS (3)
  - Sciatica [None]
  - Arthralgia [None]
  - Ehlers-Danlos syndrome [None]

NARRATIVE: CASE EVENT DATE: 20160728
